FAERS Safety Report 4293399-0 (Version None)
Quarter: 2004Q1

REPORT INFORMATION
  Report Type: 
  Country: None (occurrence: None)
  Receive Date: 20040211
  Receipt Date: 20040211
  Transmission Date: 20041129
  Serious: Yes (Other)
  Sender: FDA-Public Use
  Company Number: None

PATIENT
  Age: 38 Year
  Sex: Female
  Weight: 79.3795 kg

DRUGS (4)
  1. PAROXETINE HCL [Suspect]
     Indication: ANXIETY
     Dosage: 40 MG PO BID
     Route: 048
     Dates: start: 20030907, end: 20030921
  2. PAROXETINE HCL [Suspect]
     Indication: DEPRESSION
     Dosage: 40 MG PO BID
     Route: 048
     Dates: start: 20030907, end: 20030921
  3. PAROXETINE HCL [Suspect]
     Indication: PANIC DISORDER
     Dosage: 40 MG PO BID
     Route: 048
     Dates: start: 20030907, end: 20030921
  4. WELLBUTRIN [Concomitant]

REACTIONS (4)
  - AGITATION [None]
  - IRRITABILITY [None]
  - JUDGEMENT IMPAIRED [None]
  - PANIC ATTACK [None]
